FAERS Safety Report 18924370 (Version 2)
Quarter: 2021Q1

REPORT INFORMATION
  Report Type: Spontaneous
  Country: MX (occurrence: MX)
  Receive Date: 20210222
  Receipt Date: 20210305
  Transmission Date: 20210420
  Serious: Yes (Other)
  Sender: FDA-Public Use
  Company Number: MX-BAUSCH-BL-2021-005528

PATIENT
  Age: 82 Year
  Sex: Male
  Weight: 75 kg

DRUGS (1)
  1. VYZULTA [Suspect]
     Active Substance: LATANOPROSTENE BUNOD
     Indication: ANGLE CLOSURE GLAUCOMA
     Dosage: 1 DROP EVERY 24H
     Route: 047
     Dates: start: 20210203, end: 20210204

REACTIONS (3)
  - Eye pruritus [Recovered/Resolved]
  - Conjunctival hyperaemia [Recovered/Resolved]
  - Eye irritation [Recovered/Resolved]

NARRATIVE: CASE EVENT DATE: 20210203
